FAERS Safety Report 5002359-3 (Version None)
Quarter: 2006Q2

REPORT INFORMATION
  Report Type: 
  Country: None (occurrence: None)
  Receive Date: 20060512
  Receipt Date: 20060501
  Transmission Date: 20061013
  Serious: Yes (Hospitalization)
  Sender: FDA-Public Use
  Company Number: 2006BH001209

PATIENT
  Age: 53 Year
  Sex: Male
  Weight: 62 kg

DRUGS (9)
  1. EXTRANEAL [Suspect]
     Indication: RENAL FAILURE CHRONIC
     Dosage: 1500 ML;EVERY DAY;IP
     Route: 033
     Dates: start: 20040603
  2. DIANEAL [Concomitant]
  3. LASIX [Concomitant]
  4. AMLODIPINE BESYLATE [Concomitant]
  5. EPOGEN [Concomitant]
  6. CALCIUM CARBONATE [Concomitant]
  7. BLOPRESS [Concomitant]
  8. ALLEGRA [Concomitant]
  9. FERROMIA [Concomitant]

REACTIONS (1)
  - INGUINAL HERNIA [None]
